FAERS Safety Report 9856350 (Version 1)
Quarter: 2014Q1

REPORT INFORMATION
  Report Type: Spontaneous
  Country: FR (occurrence: FR)
  Receive Date: 20140130
  Receipt Date: 20140130
  Transmission Date: 20141002
  Serious: Yes (Hospitalization)
  Sender: FDA-Public Use
  Company Number: FR-BRISTOL-MYERS SQUIBB COMPANY-20075826

PATIENT
  Age: 41 Year
  Sex: Male

DRUGS (3)
  1. BARACLUDE TABS 0.5 MG [Suspect]
     Indication: HEPATITIS B
     Route: 048
     Dates: start: 20081202, end: 20090717
  2. KEPPRA [Suspect]
     Route: 048
     Dates: start: 20090203, end: 20090717
  3. BACTRIM FORTE TABLETS [Suspect]
     Indication: HIV INFECTION
     Route: 048
     Dates: start: 20081231, end: 20090724

REACTIONS (2)
  - Thrombocytopenia [Unknown]
  - Transaminases increased [Recovered/Resolved]
